FAERS Safety Report 5238540-8 (Version None)
Quarter: 2007Q1

REPORT INFORMATION
  Report Type: 
  Country: None (occurrence: None)
  Receive Date: 20070215
  Receipt Date: 20070213
  Transmission Date: 20070707
  Serious: Yes (Hospitalization)
  Sender: FDA-Public Use
  Company Number: JP-JPN-A200700486

PATIENT
  Age: 65 Year
  Sex: Female
  Weight: 45 kg

DRUGS (11)
  1. VALTREX [Suspect]
     Indication: HERPES ZOSTER
     Dosage: 500G TWICE PER DAY
     Route: 048
     Dates: start: 20070205, end: 20070207
  2. ALFAROL [Concomitant]
     Dosage: 1TAB PER DAY
     Route: 048
  3. CALTAN [Concomitant]
     Dosage: 1TAB THREE TIMES PER DAY
     Route: 048
  4. THYRADIN [Concomitant]
     Dosage: 1TAB PER DAY
     Route: 048
  5. ZESULAN [Concomitant]
     Dosage: 1TAB PER DAY
     Route: 048
  6. ROCORNAL [Concomitant]
     Dosage: 2TAB TWICE PER DAY
     Route: 048
  7. EURODIN [Concomitant]
     Dosage: 2TAB PER DAY
     Route: 048
  8. CYANOCOBALAMIN [Concomitant]
     Dosage: 1TAB THREE TIMES PER DAY
     Route: 048
  9. UNKNOWN DRUG [Concomitant]
     Route: 048
  10. VITAMEDIN [Concomitant]
     Dosage: 1CAP TWICE PER DAY
     Route: 048
  11. LOXONIN [Concomitant]
     Dosage: 1TAB PER DAY
     Route: 048

REACTIONS (2)
  - DIZZINESS [None]
  - ENCEPHALOPATHY [None]
